FAERS Safety Report 10779850 (Version 2)
Quarter: 2015Q1

REPORT INFORMATION
  Report Type: Spontaneous
  Country: US (occurrence: US)
  Receive Date: 20150210
  Receipt Date: 20150319
  Transmission Date: 20150721
  Serious: Yes (Other)
  Sender: FDA-Public Use
  Company Number: US-BAYER-2015-019463

PATIENT
  Age: 26 Year
  Sex: Female

DRUGS (3)
  1. IBUPROFEN. [Concomitant]
     Active Substance: IBUPROFEN
     Dosage: 800 MG, TID
     Dates: start: 20130522, end: 20130528
  2. MIRENA [Suspect]
     Active Substance: LEVONORGESTREL
     Indication: CONTRACEPTION
     Dosage: 20 MCG/24HR, CONT
     Route: 015
     Dates: start: 20120910, end: 20130614
  3. EPIPEN [Concomitant]
     Active Substance: EPINEPHRINE
     Dosage: 0.3 MG / 0.3ML PRN
     Dates: start: 20130522

REACTIONS (13)
  - Abdominal pain [None]
  - Medical device discomfort [None]
  - Depression [None]
  - Fear [None]
  - Emotional distress [None]
  - Uterine perforation [None]
  - Genital haemorrhage [None]
  - Internal injury [None]
  - Injury [None]
  - Depressed mood [None]
  - Pelvic pain [None]
  - Adnexa uteri pain [None]
  - Anxiety [None]

NARRATIVE: CASE EVENT DATE: 20130614
